FAERS Safety Report 4900194-5 (Version None)
Quarter: 2006Q1

REPORT INFORMATION
  Report Type: 
  Country: None (occurrence: None)
  Receive Date: 20060203
  Receipt Date: 20050812
  Transmission Date: 20060701
  Serious: No
  Sender: FDA-Public Use
  Company Number: US-GLAXOSMITHKLINE-A0570052A

PATIENT
  Age: 68 Year
  Sex: Female

DRUGS (4)
  1. ARIXTRA [Suspect]
     Indication: PREOPERATIVE CARE
     Dosage: 2.5MG PER DAY
     Route: 058
     Dates: start: 20050723
  2. SYNTHROID [Concomitant]
  3. FLECAINIDE ACETATE [Concomitant]
  4. BENICAR [Concomitant]

REACTIONS (4)
  - BLOOD CREATININE INCREASED [None]
  - DYSGEUSIA [None]
  - DYSPNOEA [None]
  - NAUSEA [None]
